FAERS Safety Report 22360241 (Version 1)
Quarter: 2023Q2

REPORT INFORMATION
  Report Type: Spontaneous
  Country: US (occurrence: US)
  Receive Date: 20230524
  Receipt Date: 20230524
  Transmission Date: 20230722
  Serious: No
  Sender: FDA-Public Use
  Company Number: US-SA-SAC20230523001423

PATIENT
  Age: 66 Year
  Sex: Female

DRUGS (1)
  1. DUPIXENT [Suspect]
     Active Substance: DUPILUMAB
     Indication: Rhinitis allergic
     Dosage: 300 MG, QOW
     Route: 058

REACTIONS (4)
  - Headache [Recovered/Resolved]
  - Eye pruritus [Recovered/Resolved]
  - Fatigue [Recovered/Resolved]
  - Product use in unapproved indication [Unknown]
